FAERS Safety Report 8059895-5 (Version None)
Quarter: 2012Q1

REPORT INFORMATION
  Report Type: 
  Country: None (occurrence: None)
  Receive Date: 20120120
  Receipt Date: 20120112
  Transmission Date: 20120608
  Serious: Yes (Death, Other)
  Sender: FDA-Public Use
  Company Number: JP-JNJFOC-20100704765

PATIENT
  Sex: Female
  Weight: 50 kg

DRUGS (23)
  1. LOSARTAN POTASSIUM [Concomitant]
     Indication: HYPERTENSION
     Route: 048
  2. RAMELTEON [Concomitant]
     Indication: PROPHYLAXIS
     Route: 048
     Dates: end: 20100309
  3. PYDOXAL [Concomitant]
     Indication: PROPHYLAXIS
     Route: 048
     Dates: end: 20100414
  4. FAMOTIDINE [Concomitant]
     Indication: GASTRITIS
     Route: 048
  5. MUCOSTA [Concomitant]
     Indication: GASTRITIS
     Route: 048
     Dates: start: 20100205, end: 20100303
  6. JUVELA [Concomitant]
     Indication: MUSCLE SPASMS
     Route: 048
     Dates: start: 20100205, end: 20100303
  7. DOXORUBICIN HCL [Suspect]
     Indication: UTERINE CANCER
     Dosage: CYCLE 2
     Route: 042
     Dates: start: 20100204, end: 20100204
  8. DOXORUBICIN HCL [Suspect]
     Dosage: CYCLE 1
     Route: 042
     Dates: start: 20100107, end: 20100107
  9. DOXORUBICIN HCL [Suspect]
     Dosage: CYCLE 3
     Route: 042
     Dates: start: 20100304, end: 20100304
  10. BERIZYM [Concomitant]
     Indication: GASTRITIS
     Route: 048
  11. MAGNESIUM SULFATE [Concomitant]
     Indication: CONSTIPATION
     Route: 048
  12. MOHRUS TAPE [Concomitant]
     Indication: BACK PAIN
     Route: 003
  13. GRAN [Concomitant]
     Indication: NEUTROPHIL COUNT DECREASED
     Route: 065
     Dates: start: 20100318, end: 20100319
  14. ZOLPIDEM [Concomitant]
     Indication: INSOMNIA
     Route: 048
  15. RIKKUNSHI-TO [Concomitant]
     Indication: DECREASED APPETITE
     Route: 048
     Dates: start: 20100112, end: 20100118
  16. GRAN [Concomitant]
     Route: 065
     Dates: start: 20100122, end: 20100124
  17. ALFAROL [Concomitant]
     Indication: HYPERTENSION
     Route: 048
  18. SODIUM BICARBONATE [Concomitant]
     Indication: PROPHYLAXIS
     Route: 002
     Dates: end: 20100414
  19. KENALOG [Concomitant]
     Indication: STOMATITIS
     Route: 061
     Dates: start: 20100217, end: 20100225
  20. ALLEGRA [Concomitant]
     Indication: CONJUNCTIVITIS ALLERGIC
     Route: 048
  21. EURAX [Concomitant]
     Indication: PALMAR-PLANTAR ERYTHRODYSAESTHESIA SYNDROME
     Route: 061
     Dates: start: 20100111
  22. GRAN [Concomitant]
     Route: 065
     Dates: start: 20100223, end: 20100223
  23. MYSER [Concomitant]
     Indication: PALMAR-PLANTAR ERYTHRODYSAESTHESIA SYNDROME
     Route: 061
     Dates: start: 20100205, end: 20100208

REACTIONS (3)
  - NEUTROPHIL COUNT DECREASED [None]
  - UTERINE CANCER [None]
  - OFF LABEL USE [None]
